FAERS Safety Report 24959564 (Version 1)
Quarter: 2025Q1

REPORT INFORMATION
  Report Type: Spontaneous
  Country: US (occurrence: US)
  Receive Date: 20250212
  Receipt Date: 20250212
  Transmission Date: 20250409
  Serious: Yes (Other)
  Sender: REGENERON
  Company Number: US-REGENERON PHARMACEUTICALS, INC.-2025-030087

PATIENT
  Sex: Female

DRUGS (1)
  1. PRALUENT [Suspect]
     Active Substance: ALIROCUMAB
     Indication: Type IIa hyperlipidaemia
     Dosage: 75 MG, Q2W
     Route: 058

REACTIONS (6)
  - Loss of control of legs [Recovered/Resolved]
  - Injection site haemorrhage [Unknown]
  - Gait disturbance [Recovered/Resolved]
  - Pain in extremity [Recovered/Resolved]
  - Injection site nerve damage [Recovered/Resolved]
  - Injection site haemorrhage [Recovered/Resolved]

NARRATIVE: CASE EVENT DATE: 20250207
